FAERS Safety Report 23238005 (Version 2)
Quarter: 2023Q4

REPORT INFORMATION
  Report Type: Spontaneous
  Country: US (occurrence: US)
  Receive Date: 20231129
  Receipt Date: 20231202
  Transmission Date: 20240109
  Serious: No
  Sender: FDA-Public Use
  Company Number: US-ABBVIE-5509465

PATIENT
  Age: 82 Year
  Sex: Female

DRUGS (5)
  1. REFRESH DIGITAL [Suspect]
     Active Substance: CARBOXYMETHYLCELLULOSE SODIUM\GLYCERIN\POLYSORBATE 80
     Indication: Dry eye
     Dosage: GLYCERIN 10MG/ML;POLY 80 5MG/ML;CMC 5MG/ML SOL UNIT DOSE; 30 X 0.4 ML?1 TO 2 DROPS
     Route: 047
     Dates: start: 2022
  2. VITAMIN D [Concomitant]
     Active Substance: VITAMIN D NOS
     Indication: Product used for unknown indication
     Route: 065
  3. REFRESH CLASSIC [Suspect]
     Active Substance: POLYVINYL ALCOHOL\POVIDONE
     Indication: Product used for unknown indication
     Dosage: PVA 14MG/ML;POVIDONE 6MG/ML SOL UNIT DOSE
     Route: 047
  4. POTASSIUM [Concomitant]
     Active Substance: POTASSIUM
     Indication: Product used for unknown indication
     Route: 065
  5. SINGULAIR [Concomitant]
     Active Substance: MONTELUKAST SODIUM
     Indication: Asthma
     Route: 065

REACTIONS (10)
  - Eye irritation [Recovering/Resolving]
  - Expired product administered [Unknown]
  - Eyelid margin crusting [Recovering/Resolving]
  - Ocular hyperaemia [Recovering/Resolving]
  - Vision blurred [Recovering/Resolving]
  - Eye pain [Recovering/Resolving]
  - Eye discharge [Recovering/Resolving]
  - Drug ineffective [Unknown]
  - Eye disorder [Recovering/Resolving]
  - Lacrimation increased [Unknown]

NARRATIVE: CASE EVENT DATE: 20231115
